FAERS Safety Report 4703150-5 (Version None)
Quarter: 2005Q2

REPORT INFORMATION
  Report Type: 
  Country: None (occurrence: None)
  Receive Date: 20050629
  Receipt Date: 20050504
  Transmission Date: 20051028
  Serious: Yes (Death)
  Sender: FDA-Public Use
  Company Number: 200511202EU

PATIENT
  Age: 46 Year
  Sex: Female

DRUGS (2)
  1. DOCETAXEL [Suspect]
     Indication: BREAST CANCER
     Route: 042
     Dates: start: 20050413, end: 20050413
  2. CAPECITABINE [Suspect]
     Indication: BREAST CANCER
     Route: 048
     Dates: start: 20050413, end: 20050420

REACTIONS (6)
  - CARDIAC DEATH [None]
  - FALL [None]
  - OBESITY [None]
  - PULMONARY OEDEMA [None]
  - SUDDEN DEATH [None]
  - UTERINE LEIOMYOMA [None]
